FAERS Safety Report 12610254 (Version 1)
Quarter: 2016Q3

REPORT INFORMATION
  Report Type: Report from Study
  Country: US (occurrence: US)
  Receive Date: 20160801
  Receipt Date: 20160801
  Transmission Date: 20161109
  Serious: Yes (Hospitalization, Other)
  Sender: FDA-Public Use
  Company Number: US-ROCHE-1240081

PATIENT
  Age: 46 Year
  Sex: Male
  Weight: 86.5 kg

DRUGS (3)
  1. VISMODEGIB [Suspect]
     Active Substance: VISMODEGIB
     Route: 048
     Dates: start: 20130411
  2. RO 4929097 (GAMMA SECRETASE INHIBITOR) [Suspect]
     Active Substance: INVESTIGATIONAL PRODUCT
     Indication: SOFT TISSUE NEOPLASM
     Route: 048
     Dates: start: 20130321
  3. VISMODEGIB [Suspect]
     Active Substance: VISMODEGIB
     Indication: SOFT TISSUE NEOPLASM
     Dosage: LAST DOSE RECEIVED ON 23/APR/2013
     Route: 048
     Dates: start: 20130321

REACTIONS (3)
  - Anaemia [Unknown]
  - Lymphocyte count decreased [Unknown]
  - Tumour pain [Not Recovered/Not Resolved]

NARRATIVE: CASE EVENT DATE: 20130412
